FAERS Safety Report 5309013-9 (Version None)
Quarter: 2007Q2

REPORT INFORMATION
  Report Type: 
  Country: None (occurrence: None)
  Receive Date: 20070426
  Receipt Date: 20070419
  Transmission Date: 20071010
  Serious: Yes (Other)
  Sender: FDA-Public Use
  Company Number: US-PFIZER INC-2007032012

PATIENT
  Sex: Female
  Weight: 52.2 kg

DRUGS (4)
  1. ZYRTEC [Suspect]
     Indication: HYPERSENSITIVITY
     Dates: start: 20061001, end: 20070412
  2. MONTELUKAST SODIUM [Concomitant]
  3. ASTELIN [Concomitant]
  4. ALBUTEROL [Concomitant]

REACTIONS (4)
  - ASTHMA [None]
  - FOOD ALLERGY [None]
  - HYPERSENSITIVITY [None]
  - MALAISE [None]
